FAERS Safety Report 23348244 (Version 1)
Quarter: 2023Q4

REPORT INFORMATION
  Report Type: Spontaneous
  Country: RU (occurrence: RU)
  Receive Date: 20231228
  Receipt Date: 20231228
  Transmission Date: 20240110
  Serious: Yes (Life-Threatening)
  Sender: FDA-Public Use
  Company Number: RU-PIERREL S.P.A.-2023PIR00064

PATIENT
  Age: 36 Year
  Sex: Male
  Weight: 85 kg

DRUGS (1)
  1. ORABLOC [Suspect]
     Active Substance: ARTICAINE HYDROCHLORIDE\EPINEPHRINE BITARTRATE
     Indication: Tongue disorder
     Dosage: 0.3 ML
     Route: 026
     Dates: start: 20231208, end: 20231208

REACTIONS (2)
  - Anaphylactic shock [Recovered/Resolved]
  - Off label use [Recovered/Resolved]

NARRATIVE: CASE EVENT DATE: 20231208
